FAERS Safety Report 13779643 (Version 2)
Quarter: 2017Q3

REPORT INFORMATION
  Report Type: Spontaneous
  Country: IT (occurrence: IT)
  Receive Date: 20170722
  Receipt Date: 20170731
  Transmission Date: 20171127
  Serious: Yes (Other)
  Sender: FDA-Public Use
  Company Number: IT-ROCHE-1960254

PATIENT
  Age: 59 Year
  Sex: Female
  Weight: 58 kg

DRUGS (4)
  1. PERJETA [Suspect]
     Active Substance: PERTUZUMAB
     Indication: METAPLASTIC BREAST CARCINOMA
     Dosage: MOST RECENT DOSE: 23/MAY/2017
     Route: 042
     Dates: start: 20161213
  2. PACLITAXEL. [Suspect]
     Active Substance: PACLITAXEL
     Indication: METAPLASTIC BREAST CARCINOMA
     Dosage: ONGOING, 1ST AND 3RD CYCLE DOSE
     Route: 042
     Dates: start: 20161213
  3. PACLITAXEL. [Suspect]
     Active Substance: PACLITAXEL
     Dosage: 2ND AND 5TH CYCLE DOSE, MOST RECENT DOSE: 23/MAY/2017
     Route: 042
  4. HERCEPTIN [Suspect]
     Active Substance: TRASTUZUMAB
     Indication: METAPLASTIC BREAST CARCINOMA
     Dosage: MOST RECENT DOSE: 23/MAY/2017
     Route: 042
     Dates: start: 20161213

REACTIONS (6)
  - Hypotension [Recovering/Resolving]
  - Myalgia [Not Recovered/Not Resolved]
  - Gastrointestinal motility disorder [Recovering/Resolving]
  - Diarrhoea [Recovering/Resolving]
  - Paraesthesia [Recovering/Resolving]
  - Influenza [Recovering/Resolving]

NARRATIVE: CASE EVENT DATE: 20161229
